FAERS Safety Report 25322140 (Version 1)
Quarter: 2025Q2

REPORT INFORMATION
  Report Type: Spontaneous
  Country: US (occurrence: US)
  Receive Date: 20250516
  Receipt Date: 20250516
  Transmission Date: 20250716
  Serious: No
  Sender: APOTEX
  Company Number: US-APOTEX-2025AP005700

PATIENT

DRUGS (1)
  1. REGADENOSON [Suspect]
     Active Substance: REGADENOSON
     Indication: Product used for unknown indication
     Route: 065

REACTIONS (3)
  - Heart rate increased [Unknown]
  - Dyspnoea [Unknown]
  - Chest pain [Unknown]

NARRATIVE: CASE EVENT DATE: 20250401
